FAERS Safety Report 8238869-5 (Version None)
Quarter: 2012Q1

REPORT INFORMATION
  Report Type: 
  Country: None (occurrence: None)
  Receive Date: 20120327
  Receipt Date: 20120315
  Transmission Date: 20120608
  Serious: Yes (Other)
  Sender: FDA-Public Use
  Company Number: CHPA2012US005244

PATIENT
  Age: 57 Year
  Sex: Male

DRUGS (1)
  1. THERAFLU NIGHTTIME SEVERE COLD + COUGH [Suspect]
     Indication: NASOPHARYNGITIS
     Dosage: 1 DF, Q12H
     Route: 048
     Dates: start: 20120104, end: 20120109

REACTIONS (3)
  - GASTROINTESTINAL PAIN [None]
  - GASTROINTESTINAL DISORDER [None]
  - ABDOMINAL PAIN UPPER [None]
